FAERS Safety Report 10906237 (Version 6)
Quarter: 2015Q2

REPORT INFORMATION
  Report Type: Spontaneous
  Country: US (occurrence: US)
  Receive Date: 20150311
  Receipt Date: 20150625
  Transmission Date: 20150821
  Serious: Yes (Death, Life-Threatening, Hospitalization, Other)
  Sender: FDA-Public Use
  Company Number: US-OTSUKA-US-2015-11097

PATIENT
  Age: 47 Year
  Sex: Male

DRUGS (1)
  1. ABILIFY MAINTENA [Suspect]
     Active Substance: ARIPIPRAZOLE
     Indication: SCHIZOPHRENIA
     Dosage: 400 MG, QM
     Route: 030
     Dates: end: 20150313

REACTIONS (4)
  - Fluid overload [Unknown]
  - Life support [Unknown]
  - Diabetes mellitus [Unknown]
  - Hepatic failure [Fatal]

NARRATIVE: CASE EVENT DATE: 20150228
